FAERS Safety Report 12126544 (Version 1)
Quarter: 2016Q1

REPORT INFORMATION
  Report Type: Spontaneous
  Country: ES (occurrence: ES)
  Receive Date: 20160229
  Receipt Date: 20160229
  Transmission Date: 20160526
  Serious: Yes (Other)
  Sender: FDA-Public Use
  Company Number: ES-SHIRE-ES201602298

PATIENT
  Age: 8 Year
  Sex: Female

DRUGS (4)
  1. AZATHIOPRINE. [Concomitant]
     Active Substance: AZATHIOPRINE
     Indication: PROCTITIS ULCERATIVE
     Dosage: UNK, UNKNOWN
     Route: 065
  2. 476 (MESALAZINE/MESALAMINE) [Suspect]
     Active Substance: MESALAMINE
     Indication: PROCTITIS ULCERATIVE
     Dosage: UNK UNK, UNKNOWN
     Route: 048
  3. BECLOMETASONE DIPROPIONATE [Concomitant]
     Active Substance: BECLOMETHASONE DIPROPIONATE
     Indication: PROCTITIS ULCERATIVE
     Dosage: 5 MG, UNKNOWN (PER DAY)
     Route: 048
  4. BUDESONIDE. [Concomitant]
     Active Substance: BUDESONIDE
     Indication: PROCTITIS ULCERATIVE
     Dosage: UNK, UNKNOWN
     Route: 054

REACTIONS (4)
  - Product use issue [Unknown]
  - Drug administered to patient of inappropriate age [Unknown]
  - Diarrhoea haemorrhagic [Recovered/Resolved]
  - Abdominal pain [Recovered/Resolved]
